FAERS Safety Report 5146147-6 (Version None)
Quarter: 2006Q4

REPORT INFORMATION
  Report Type: 
  Country: None (occurrence: None)
  Receive Date: 20061108
  Receipt Date: 20061030
  Transmission Date: 20070319
  Serious: Yes (Hospitalization)
  Sender: FDA-Public Use
  Company Number: US-SANOFI-SYNTHELABO-A03200606578

PATIENT
  Age: 72 Year
  Sex: Male

DRUGS (5)
  1. PLAVIX [Suspect]
     Indication: STENT PLACEMENT
     Dosage: UNK
     Route: 048
     Dates: start: 20001218, end: 20001201
  2. PLAVIX [Suspect]
     Indication: MYOCARDIAL INFARCTION
     Dosage: UNK
     Route: 048
     Dates: start: 20001218, end: 20001201
  3. NITROGLYCERIN [Concomitant]
     Route: 045
  4. NORVASC [Concomitant]
     Dosage: UNK
     Route: 048
  5. TOPROL-XL [Concomitant]
     Dosage: UNK
     Route: 048

REACTIONS (3)
  - DEEP VEIN THROMBOSIS [None]
  - PULMONARY EMBOLISM [None]
  - PULMONARY THROMBOSIS [None]
